FAERS Safety Report 6409643-7 (Version None)
Quarter: 2009Q4

REPORT INFORMATION
  Report Type: 
  Country: None (occurrence: None)
  Receive Date: 20091022
  Receipt Date: 20091019
  Transmission Date: 20100525
  Serious: Yes (Other)
  Sender: FDA-Public Use
  Company Number: US-CUBIST-2009S1000464

PATIENT

DRUGS (1)
  1. CUBICIN [Suspect]

REACTIONS (1)
  - DRUG WITHDRAWAL SYNDROME NEONATAL [None]
